FAERS Safety Report 4714085-6 (Version None)
Quarter: 2005Q3

REPORT INFORMATION
  Report Type: 
  Country: None (occurrence: None)
  Receive Date: 20050712
  Receipt Date: 20050628
  Transmission Date: 20060218
  Serious: Yes (Death, Life-Threatening, Hospitalization, Other)
  Sender: FDA-Public Use
  Company Number: 2005085646

PATIENT
  Age: 73 Year
  Sex: Male
  Weight: 59 kg

DRUGS (13)
  1. SOLU-MEDROL [Suspect]
     Indication: ANAPHYLACTIC SHOCK
     Dosage: 500 MG (500 MG, 1 IN 1 D), INTRAVENOUS
     Route: 042
     Dates: start: 20050601, end: 20050601
  2. SOLU-MEDROL [Suspect]
     Indication: PYREXIA
     Dosage: 500 MG (500 MG, 1 IN 1 D), INTRAVENOUS
     Route: 042
     Dates: start: 20050601, end: 20050601
  3. SOLU-MEDROL [Suspect]
     Indication: URINARY BLADDER EXCISION
     Dosage: 500 MG (500 MG, 1 IN 1 D), INTRAVENOUS
     Route: 042
     Dates: start: 20050601, end: 20050601
  4. HEPARIN SODIUM [Suspect]
     Indication: ANTICOAGULANT THERAPY
     Dates: start: 20050610
  5. VOLTAREN [Suspect]
     Indication: PYREXIA
     Dosage: 50 MG (50 MG, 1 IN 1 D), RECTAL
     Route: 054
     Dates: start: 20050601, end: 20050601
  6. VOLTAREN [Suspect]
     Indication: URINARY BLADDER EXCISION
     Dosage: 50 MG (50 MG, 1 IN 1 D), RECTAL
     Route: 054
     Dates: start: 20050601, end: 20050601
  7. ASPIRIN [Suspect]
     Indication: ANTICOAGULANT THERAPY
     Dates: start: 20050601
  8. TICLOPIDINE HCL [Suspect]
     Indication: ANTICOAGULANT THERAPY
     Dates: start: 20050601
  9. EFFORTIL (ETILEFRINE HYDROCHLORIDE) [Concomitant]
  10. CATABON (DOPAMINE HYDROCHLORIDE) [Concomitant]
  11. VEN D (CALCIUM CHLORIDE DIHYDRATE, GLUCOSE, POTASSIUM CHLROIDE, SODIUM [Concomitant]
  12. ADONA (CARBAZOCHROME SODIUM SULFONATE) [Concomitant]
  13. GASTER (FAMOTIDINE0 [Concomitant]

REACTIONS (13)
  - ANAPHYLACTIC SHOCK [None]
  - BLOOD PRESSURE FLUCTUATION [None]
  - BRAIN OEDEMA [None]
  - CARDIO-RESPIRATORY ARREST [None]
  - CORONARY ARTERY STENOSIS [None]
  - ERYTHEMA [None]
  - HEART RATE DECREASED [None]
  - HYPOXIC ENCEPHALOPATHY [None]
  - INTRA-ABDOMINAL HAEMORRHAGE [None]
  - LOSS OF CONSCIOUSNESS [None]
  - MYOCARDIAL INFARCTION [None]
  - VENTRICULAR TACHYCARDIA [None]
  - VOMITING [None]
